FAERS Safety Report 7609219-X (Version None)
Quarter: 2011Q3

REPORT INFORMATION
  Report Type: 
  Country: None (occurrence: None)
  Receive Date: 20110713
  Receipt Date: 20110713
  Transmission Date: 20111222
  Serious: Yes (Life-Threatening, Hospitalization, Other)
  Sender: FDA-Public Use
  Company Number: None

PATIENT
  Age: 61 Year
  Sex: Female
  Weight: 83.9154 kg

DRUGS (1)
  1. ACTOS [Suspect]

REACTIONS (8)
  - OEDEMA PERIPHERAL [None]
  - GAIT DISTURBANCE [None]
  - NASOPHARYNGITIS [None]
  - FALL [None]
  - CARDIAC DISORDER [None]
  - LOSS OF EMPLOYMENT [None]
  - BLINDNESS [None]
  - CARDIAC PACEMAKER INSERTION [None]
